FAERS Safety Report 18575198 (Version 4)
Quarter: 2021Q1

REPORT INFORMATION
  Report Type: Spontaneous
  Country: US (occurrence: US)
  Receive Date: 20201203
  Receipt Date: 20210125
  Transmission Date: 20210419
  Serious: No
  Sender: FDA-Public Use
  Company Number: US-PFIZER INC-2020476637

PATIENT
  Age: 78 Year
  Sex: Male

DRUGS (2)
  1. XELJANZ [Suspect]
     Active Substance: TOFACITINIB CITRATE
     Indication: INTESTINAL OBSTRUCTION
     Dosage: 5 MG, 2X/DAY (X12 WEEKS)
  2. XELJANZ [Suspect]
     Active Substance: TOFACITINIB CITRATE
     Indication: CROHN^S DISEASE
     Dosage: 10 MG, 2X/DAY (X8 WEEKS)
     Route: 048

REACTIONS (2)
  - Drug hypersensitivity [Unknown]
  - Off label use [Unknown]
